FAERS Safety Report 9033117 (Version 1)
Quarter: 2013Q1

REPORT INFORMATION
  Report Type: Spontaneous
  Country: US (occurrence: US)
  Receive Date: 20130128
  Receipt Date: 20130128
  Transmission Date: 20140127
  Serious: No
  Sender: FDA-Public Use
  Company Number: US-PFIZER INC-2013028315

PATIENT
  Age: 74 Year
  Sex: Female

DRUGS (8)
  1. LIOTHYRONINE SODIUM [Suspect]
     Indication: HYPOTHYROIDISM
     Dosage: UNK
     Dates: start: 2012, end: 2012
  2. CYTOMEL [Suspect]
     Indication: HYPOTHYROIDISM
     Dosage: UNK
     Dates: start: 201211, end: 20130107
  3. ARMOUR THYROID [Suspect]
     Indication: HYPOTHYROIDISM
     Dosage: UNK
     Route: 048
     Dates: start: 2010
  4. ARMOUR THYROID [Suspect]
     Dosage: 30 MG, 3X/DAY (60 MG IN THE MORNING AND 30 MG AT LUNCH)
     Route: 048
  5. VITAMIN D [Concomitant]
     Dosage: UNK
  6. MAGNESIUM [Concomitant]
     Dosage: UNK
  7. ESTROGEN [Concomitant]
     Dosage: UNK
  8. L-ARGININE [Concomitant]
     Dosage: UNK

REACTIONS (3)
  - Pruritus [Recovering/Resolving]
  - Urticaria [Recovering/Resolving]
  - Alopecia [Recovering/Resolving]
